FAERS Safety Report 8446835-X (Version None)
Quarter: 2012Q2

REPORT INFORMATION
  Report Type: 
  Country: None (occurrence: None)
  Receive Date: 20120619
  Receipt Date: 20120608
  Transmission Date: 20120825
  Serious: No
  Sender: FDA-Public Use
  Company Number: US-BIOGENIDEC-2012BI020737

PATIENT
  Age: 60 Year
  Sex: Female

DRUGS (2)
  1. AVONEX [Suspect]
     Indication: MULTIPLE SCLEROSIS
     Route: 030
     Dates: start: 19970601, end: 20030610
  2. AVONEX [Suspect]
     Route: 030
     Dates: start: 20040401, end: 20120415

REACTIONS (5)
  - ARTHRALGIA [None]
  - ADVERSE REACTION [None]
  - TOOTH EXTRACTION [None]
  - PYREXIA [None]
  - INFLUENZA [None]
